FAERS Safety Report 8364294-2 (Version None)
Quarter: 2012Q2

REPORT INFORMATION
  Report Type: 
  Country: None (occurrence: None)
  Receive Date: 20120516
  Receipt Date: 20120507
  Transmission Date: 20120825
  Serious: Yes (Hospitalization)
  Sender: FDA-Public Use
  Company Number: US-ACTELION-A-US2012-65349

PATIENT

DRUGS (7)
  1. SILDENAFIL [Concomitant]
     Indication: PULMONARY ARTERIAL HYPERTENSION
  2. OXYGEN [Concomitant]
  3. TRACLEER [Suspect]
     Indication: PULMONARY ARTERIAL HYPERTENSION
     Dosage: UNK
     Route: 048
     Dates: start: 20081110
  4. CALCIUM CHANNEL BLOCKERS [Concomitant]
  5. MULTAQ [Concomitant]
  6. COUMADIN [Concomitant]
  7. REMODULIN [Concomitant]

REACTIONS (1)
  - HIP FRACTURE [None]
